FAERS Safety Report 16006190 (Version 1)
Quarter: 2019Q1

REPORT INFORMATION
  Report Type: Spontaneous
  Country: US (occurrence: US)
  Receive Date: 20190226
  Receipt Date: 20190226
  Transmission Date: 20190418
  Serious: Yes (Other)
  Sender: FDA-Public Use
  Company Number: US-SEBELA IRELAND LIMITED-2019SEB00041

PATIENT
  Sex: Male

DRUGS (3)
  1. RITUXAN [Suspect]
     Active Substance: RITUXIMAB
     Dosage: UNK
     Dates: start: 2010
  2. IMURAN [Suspect]
     Active Substance: AZATHIOPRINE
  3. UNSPECIFIED STATIN [Concomitant]

REACTIONS (8)
  - Atrial fibrillation [Unknown]
  - Productive cough [Unknown]
  - Fatigue [Unknown]
  - Inflammation [Unknown]
  - Stent placement [Unknown]
  - Neuropathy peripheral [Unknown]
  - Unevaluable event [Unknown]
  - Respiratory tract congestion [Unknown]
